FAERS Safety Report 4753398-9 (Version None)
Quarter: 2005Q3

REPORT INFORMATION
  Report Type: 
  Country: None (occurrence: None)
  Receive Date: 20050824
  Receipt Date: 20050815
  Transmission Date: 20060218
  Serious: Yes (Hospitalization)
  Sender: FDA-Public Use
  Company Number: 2005041391

PATIENT
  Age: 80 Year
  Sex: Male

DRUGS (3)
  1. ZOLOFT [Suspect]
     Indication: ILL-DEFINED DISORDER
     Dosage: 50 MG, ORAL
     Route: 048
     Dates: start: 20031216, end: 20040824
  2. ZYPREXA [Suspect]
     Indication: ILL-DEFINED DISORDER
     Dosage: 5 MG, ORAL
     Route: 048
     Dates: start: 20031216, end: 20040823
  3. MEMANTINE HCL [Suspect]
     Indication: DEMENTIA ALZHEIMER'S TYPE
     Dosage: 5 MG, ORAL
     Route: 048
     Dates: start: 20031216, end: 20040831

REACTIONS (8)
  - AGGRESSION [None]
  - DELIRIUM [None]
  - DRUG INTERACTION [None]
  - DRUG LEVEL INCREASED [None]
  - FUMBLING [None]
  - HALLUCINATION [None]
  - INFECTION [None]
  - RESTLESSNESS [None]
